FAERS Safety Report 21274723 (Version 1)
Quarter: 2022Q3

REPORT INFORMATION
  Report Type: Spontaneous
  Country: US (occurrence: None)
  Receive Date: 20220831
  Receipt Date: 20220831
  Transmission Date: 20221026
  Serious: Yes (Other)
  Sender: FDA-Public Use
  Company Number: None

PATIENT
  Age: 57 Year
  Sex: Male
  Weight: 101 kg

DRUGS (1)
  1. STELARA [Suspect]
     Active Substance: USTEKINUMAB
     Indication: Pouchitis
     Dosage: OTHER FREQUENCY : ONCE;?
     Route: 042
     Dates: start: 20220828

REACTIONS (4)
  - Vomiting [None]
  - Muscle tightness [None]
  - Throat tightness [None]
  - Muscle tightness [None]

NARRATIVE: CASE EVENT DATE: 20220829
